FAERS Safety Report 4317961-1 (Version None)
Quarter: 2004Q1

REPORT INFORMATION
  Report Type: 
  Country: None (occurrence: None)
  Receive Date: 20040316
  Receipt Date: 20040303
  Transmission Date: 20041129
  Serious: Yes (Other)
  Sender: FDA-Public Use
  Company Number: GB-GLAXOSMITHKLINE-B0325623A

PATIENT
  Sex: Male

DRUGS (2)
  1. MALARONE [Suspect]
     Route: 048
  2. ARTEMETHER [Concomitant]

REACTIONS (5)
  - ALANINE AMINOTRANSFERASE INCREASED [None]
  - ASTHENIA [None]
  - HEPATIC STEATOSIS [None]
  - HEPATOMEGALY [None]
  - LETHARGY [None]
